FAERS Safety Report 6415969-3 (Version None)
Quarter: 2009Q4

REPORT INFORMATION
  Report Type: 
  Country: None (occurrence: None)
  Receive Date: 20091027
  Receipt Date: 20091020
  Transmission Date: 20100525
  Serious: Yes (Hospitalization)
  Sender: FDA-Public Use
  Company Number: B0599999A

PATIENT
  Sex: Female

DRUGS (14)
  1. ARIXTRA [Suspect]
     Indication: DRUG USE FOR UNKNOWN INDICATION
     Route: 048
     Dates: start: 20090729
  2. IMDUR [Suspect]
     Indication: DRUG USE FOR UNKNOWN INDICATION
     Route: 065
  3. COZAAR [Concomitant]
  4. STILNOCT [Concomitant]
  5. UNKNOWN DRUG [Concomitant]
  6. NITROMEX [Concomitant]
  7. ZYLORIC [Concomitant]
  8. IMPUGAN [Concomitant]
  9. LEVOTHYROXINE SODIUM [Concomitant]
  10. PULMICORT [Concomitant]
  11. SUSCARD [Concomitant]
  12. SELOKEN [Concomitant]
  13. OXASCAND [Concomitant]
  14. TROMBYL [Concomitant]

REACTIONS (1)
  - ANGIOEDEMA [None]
